FAERS Safety Report 21996441 (Version 1)
Quarter: 2023Q1

REPORT INFORMATION
  Report Type: Spontaneous
  Country: RO (occurrence: None)
  Receive Date: 20230215
  Receipt Date: 20230215
  Transmission Date: 20230417
  Serious: Yes (Disabling, Other)
  Sender: FDA-Public Use
  Company Number: 2023A035133

PATIENT
  Age: 28 Year
  Sex: Female

DRUGS (1)
  1. FASENRA [Suspect]
     Active Substance: BENRALIZUMAB
     Indication: Asthma
     Route: 058
     Dates: start: 202210

REACTIONS (2)
  - Gait disturbance [Unknown]
  - Osteonecrosis [Unknown]

NARRATIVE: CASE EVENT DATE: 20230101
